FAERS Safety Report 4293931-7 (Version None)
Quarter: 2004Q1

REPORT INFORMATION
  Report Type: 
  Country: None (occurrence: None)
  Receive Date: 20040210
  Receipt Date: 20040122
  Transmission Date: 20041129
  Serious: Yes (Death, Hospitalization)
  Sender: FDA-Public Use
  Company Number: 510#5#2003-30642

PATIENT
  Age: 78 Year
  Sex: Female

DRUGS (17)
  1. LIDOCAINE [Suspect]
     Indication: POST HERPETIC NEURALGIA
     Dosage: TTS
     Dates: start: 20030920, end: 20031113
  2. LIDOCAINE [Suspect]
     Indication: POST HERPETIC NEURALGIA
     Dosage: TTS
     Dates: start: 20031113, end: 20031216
  3. LIDOCAINE [Suspect]
     Indication: POST HERPETIC NEURALGIA
     Dosage: TTS
     Dates: start: 20040103, end: 20040108
  4. AMLODIPINE [Concomitant]
  5. TERBUTALINE SULFATE [Concomitant]
  6. BETAMETHASONE DIPROPIOANTE (BETAMETHASONE DIPROPIONATE) [Concomitant]
  7. VITAMIN B () [Concomitant]
  8. MIXTARD HUMAN (INSULIN HUMAN) [Concomitant]
  9. ATORVASTATIN CALCIUM [Concomitant]
  10. ENALAPRIL MALEATE [Concomitant]
  11. FUROSEMIDE [Concomitant]
  12. COMBIVENT [Concomitant]
  13. BECOTIDE (BECLOMETASONE DIPROPIONATE) [Concomitant]
  14. ERYTHROMYCIN [Concomitant]
  15. CEFUROXIME [Concomitant]
  16. PREDNISOLONE [Concomitant]
  17. CO-PROXAMOL (DEXTROPROPOXYPHENE HYDROCHLORIDE, PARACETAMOL) [Concomitant]

REACTIONS (12)
  - ASTHMA [None]
  - BLOOD GLUCOSE INCREASED [None]
  - C-REACTIVE PROTEIN INCREASED [None]
  - CARDIAC FAILURE CONGESTIVE [None]
  - CONFUSIONAL STATE [None]
  - HYPOXIA [None]
  - MYOCARDIAL INFARCTION [None]
  - MYOCARDIAL ISCHAEMIA [None]
  - NEUTROPHILIA [None]
  - PNEUMONIA [None]
  - RENAL FAILURE CHRONIC [None]
  - RESPIRATORY RATE INCREASED [None]
